FAERS Safety Report 4621560-1 (Version None)
Quarter: 2005Q1

REPORT INFORMATION
  Report Type: 
  Country: None (occurrence: None)
  Receive Date: 20050328
  Receipt Date: 20040426
  Transmission Date: 20050727
  Serious: Yes (Hospitalization)
  Sender: FDA-Public Use
  Company Number: 7911

PATIENT
  Age: 33 Year
  Sex: Female

DRUGS (2)
  1. FLUPHENAZINE [Suspect]
     Dosage: INJ
  2. OLANZAPINE [Suspect]
     Indication: MENTAL DISORDER
     Dosage: 10 MG

REACTIONS (17)
  - BLOOD IRON DECREASED [None]
  - BLOOD PRESSURE FLUCTUATION [None]
  - CHILLS [None]
  - COMA [None]
  - CONFUSIONAL STATE [None]
  - DISORIENTATION [None]
  - GRAND MAL CONVULSION [None]
  - HYPOKALAEMIA [None]
  - NEUROLEPTIC MALIGNANT SYNDROME [None]
  - PNEUMONIA [None]
  - RENAL FAILURE ACUTE [None]
  - RESPIRATORY ACIDOSIS [None]
  - RHABDOMYOLYSIS [None]
  - SOMNOLENCE [None]
  - TACHYCARDIA [None]
  - TREMOR [None]
  - URINARY TRACT INFECTION [None]
